FAERS Safety Report 8513381 (Version 2)
Quarter: 2012Q4

REPORT INFORMATION
  Report Type: 
  Country: US (occurrence: US)
  Receive Date: 20120416
  Receipt Date: 20120831
  Transmission Date: 20130627
  Serious: Yes (Other)
  Sender: FDA-Public Use
  Company Number: US-PFIZER INC-2012090196

PATIENT
  Sex: Female

DRUGS (3)
  1. ZOLPIDEM TARTRATE [Suspect]
     Dosage: 5 mg, UNK
  2. ZOLPIDEM TARTRATE [Suspect]
     Dosage: 2.5mg per night
  3. NEURONTIN [Suspect]
     Dosage: UNK

REACTIONS (3)
  - Depression [Unknown]
  - Drug ineffective [Unknown]
  - Wrong technique in drug usage process [Unknown]
